FAERS Safety Report 19372162 (Version 1)
Quarter: 2021Q2

REPORT INFORMATION
  Report Type: Spontaneous
  Country: GB (occurrence: GB)
  Receive Date: 20210604
  Receipt Date: 20210604
  Transmission Date: 20210717
  Serious: Yes (Other)
  Sender: FDA-Public Use
  Company Number: GB-TEVA-2021-GB-1918055

PATIENT
  Age: 61 Year
  Sex: Female
  Weight: 89 kg

DRUGS (10)
  1. FEXOFENADINE [Concomitant]
     Active Substance: FEXOFENADINE HYDROCHLORIDE
     Dosage: 1 DOSAGE FORMS DAILY;
     Dates: start: 20210514
  2. PENTASA [Concomitant]
     Active Substance: MESALAMINE
     Dosage: 4 DOSAGE FORMS
     Dates: start: 20201211
  3. LETROZOLE. [Concomitant]
     Active Substance: LETROZOLE
     Dosage: 1 DOSAGE FORMS DAILY;
     Dates: start: 20201211
  4. VITAMIN B SUBSTANCES [Concomitant]
     Dosage: 3 DOSAGE FORMS DAILY;
     Dates: start: 20210331
  5. HYDROCORTISONE. [Concomitant]
     Active Substance: HYDROCORTISONE
     Dosage: 2 DOSAGE FORMS DAILY; APPLY SPARINGLY
     Dates: start: 20210331, end: 20210407
  6. THIAMINE. [Concomitant]
     Active Substance: THIAMINE
     Dosage: 1 DOSAGE FORMS DAILY;
     Dates: start: 20210331
  7. FOLIC ACID. [Suspect]
     Active Substance: FOLIC ACID
     Dosage: 5 MILLIGRAM DAILY;
     Route: 065
     Dates: start: 20210409
  8. CLOTRIMAZOLE. [Concomitant]
     Active Substance: CLOTRIMAZOLE
     Dosage: APPLY 2?3 TIMES/DAY FOR 7 DAYS OR UNTIL SYMPTOM...
     Dates: start: 20210423, end: 20210430
  9. COSMOCOL [Concomitant]
     Dosage: 1 DOSAGE FORMS DAILY; ONE SACHET UP TO THREE TIMES A DAY
     Dates: start: 20201211
  10. OMEPRAZOLE. [Concomitant]
     Active Substance: OMEPRAZOLE
     Dosage: 1 DOSAGE FORMS DAILY;
     Dates: start: 20201211

REACTIONS (1)
  - Rash erythematous [Recovering/Resolving]

NARRATIVE: CASE EVENT DATE: 20210521
